FAERS Safety Report 4414909-6 (Version None)
Quarter: 2004Q3

REPORT INFORMATION
  Report Type: 
  Country: None (occurrence: None)
  Receive Date: 20040729
  Receipt Date: 20040720
  Transmission Date: 20050211
  Serious: Yes (Other)
  Sender: FDA-Public Use
  Company Number: 2004UW15237

PATIENT
  Age: 4 Year
  Sex: Male

DRUGS (5)
  1. MEROPENEM [Suspect]
     Dosage: 200 MG/L DIALYSATE FLUID
  2. IMIPENEM [Suspect]
  3. VANCOMYCIN [Concomitant]
  4. CEFTAZIDIME [Concomitant]
  5. TOBRAMYCIN [Concomitant]

REACTIONS (3)
  - BLOOD POTASSIUM DECREASED [None]
  - MEDICATION ERROR [None]
  - MYOCLONUS [None]
